FAERS Safety Report 4588831-9 (Version None)
Quarter: 2005Q1

REPORT INFORMATION
  Report Type: 
  Country: None (occurrence: None)
  Receive Date: 20050216
  Receipt Date: 20050201
  Transmission Date: 20050727
  Serious: Yes (Hospitalization)
  Sender: FDA-Public Use
  Company Number: 2004BI000885

PATIENT
  Age: 26 Year
  Sex: Female
  Weight: 49.8957 kg

DRUGS (1)
  1. AVONEX [Suspect]
     Indication: MULTIPLE SCLEROSIS
     Dosage: QW; IM
     Route: 030
     Dates: end: 19970601

REACTIONS (5)
  - ANOREXIA [None]
  - ATROPHY [None]
  - ECONOMIC PROBLEM [None]
  - INFLUENZA LIKE ILLNESS [None]
  - NASOPHARYNGEAL DISORDER [None]
